FAERS Safety Report 10303440 (Version 1)
Quarter: 2014Q3

REPORT INFORMATION
  Report Type: Spontaneous
  Country: US (occurrence: None)
  Receive Date: 20140710
  Receipt Date: 20140710
  Transmission Date: 20150326
  Serious: Yes (Hospitalization)
  Sender: FDA-Public Use
  Company Number: UNT-2014-003273

PATIENT
  Age: 57 Year
  Sex: Male

DRUGS (2)
  1. ASPIRIN (ACETYLSALICYLIC ACID) [Concomitant]
     Active Substance: ASPIRIN
  2. TYVASO [Suspect]
     Active Substance: TREPROSTINIL
     Indication: PULMONARY ARTERIAL HYPERTENSION
     Route: 055
     Dates: start: 20130508

REACTIONS (6)
  - Asthenia [None]
  - Fatigue [None]
  - Haemoglobin decreased [None]
  - Nausea [None]
  - International normalised ratio increased [None]
  - Melaena [None]

NARRATIVE: CASE EVENT DATE: 20140423
